FAERS Safety Report 25786484 (Version 1)
Quarter: 2025Q3

REPORT INFORMATION
  Report Type: Spontaneous
  Country: US (occurrence: US)
  Receive Date: 20250910
  Receipt Date: 20250910
  Transmission Date: 20251020
  Serious: No
  Sender: SANOFI AVENTIS
  Company Number: US-SA-SAC20240403000607

PATIENT
  Age: 95 Year
  Sex: Female

DRUGS (14)
  1. DUPILUMAB [Suspect]
     Active Substance: DUPILUMAB
     Indication: Dermatitis atopic
     Route: 058
     Dates: start: 20240308, end: 20240308
  2. DUPILUMAB [Suspect]
     Active Substance: DUPILUMAB
     Dosage: 300 MG, QOW
     Route: 058
     Dates: start: 202403
  3. TRIAMCINOLONE [Concomitant]
     Active Substance: TRIAMCINOLONE
  4. TACROLIMUS [Concomitant]
     Active Substance: TACROLIMUS
  5. TYLENOL [Concomitant]
     Active Substance: ACETAMINOPHEN
  6. JARDIANCE [Concomitant]
     Active Substance: EMPAGLIFLOZIN
  7. CARVEDILOL [Concomitant]
     Active Substance: CARVEDILOL
  8. FERROUS SULFATE [Concomitant]
     Active Substance: FERROUS SULFATE
  9. MONTELUKAST [Concomitant]
     Active Substance: MONTELUKAST
  10. ENSURE [Concomitant]
     Active Substance: AMINO ACIDS\DEXTROSE\ELECTROLYTES NOS\SOYBEAN OIL\VITAMINS
  11. LEVOTHYROXINE [Concomitant]
     Active Substance: LEVOTHYROXINE
  12. DONEPEZIL [Concomitant]
     Active Substance: DONEPEZIL
  13. LOVASTATIN [Concomitant]
     Active Substance: LOVASTATIN
  14. COLACE [Concomitant]
     Active Substance: DOCUSATE SODIUM

REACTIONS (5)
  - Throat irritation [Unknown]
  - Pruritus [Not Recovered/Not Resolved]
  - Drug ineffective [Not Recovered/Not Resolved]
  - Rash pruritic [Recovering/Resolving]
  - Eye pruritus [Unknown]

NARRATIVE: CASE EVENT DATE: 20240101
